FAERS Safety Report 23080662 (Version 4)
Quarter: 2023Q4

REPORT INFORMATION
  Report Type: Report from Study
  Country: US (occurrence: US)
  Receive Date: 20231018
  Receipt Date: 20231122
  Transmission Date: 20240110
  Serious: Yes (Hospitalization)
  Sender: FDA-Public Use
  Company Number: US-ARGENX-2023-ARGX-US003411

PATIENT

DRUGS (1)
  1. VYVGART [Suspect]
     Active Substance: EFGARTIGIMOD ALFA-FCAB
     Indication: Product used for unknown indication
     Dosage: UNK
     Route: 042

REACTIONS (11)
  - Blood pressure increased [Unknown]
  - Blood pressure increased [Recovered/Resolved]
  - Blood sodium decreased [Recovered/Resolved]
  - Muscle spasms [Recovered/Resolved]
  - Foot deformity [Recovered/Resolved]
  - Blood pressure increased [Not Recovered/Not Resolved]
  - Back pain [Unknown]
  - Blood potassium increased [Unknown]
  - Pain in extremity [Unknown]
  - Therapy interrupted [Unknown]
  - Alopecia [Unknown]

NARRATIVE: CASE EVENT DATE: 20231006
